FAERS Safety Report 8770423 (Version 1)
Quarter: 2012Q4

REPORT INFORMATION
  Report Type: 
  Country: CL (occurrence: CL)
  Receive Date: 20120906
  Receipt Date: 20120906
  Transmission Date: 20130627
  Serious: Yes (Other)
  Sender: FDA-Public Use
  Company Number: PHHY2012CL075593

PATIENT
  Age: 45 Year
  Sex: Female

DRUGS (1)
  1. CAFERGOT [Suspect]
     Indication: MIGRAINE
     Dosage: 1 DF, every day (1 mg/ 100 mg)

REACTIONS (18)
  - Retroperitoneal fibrosis [Recovering/Resolving]
  - Retroperitoneal mass [Recovering/Resolving]
  - Renal impairment [Unknown]
  - Renal atrophy [Unknown]
  - Hydronephrosis [Unknown]
  - Lymphoma [Unknown]
  - Mass [Unknown]
  - Back pain [Recovering/Resolving]
  - Abdominal pain lower [Recovering/Resolving]
  - General physical health deterioration [Unknown]
  - Fatigue [Unknown]
  - Inflammation [Not Recovered/Not Resolved]
  - Red blood cell sedimentation rate increased [Recovering/Resolving]
  - C-reactive protein increased [Recovering/Resolving]
  - Anaemia [Recovering/Resolving]
  - Thrombocytosis [Recovering/Resolving]
  - Decreased appetite [Recovering/Resolving]
  - Rouleaux formation [Recovering/Resolving]
